FAERS Safety Report 21559908 (Version 1)
Quarter: 2022Q4

REPORT INFORMATION
  Report Type: Spontaneous
  Country: CA (occurrence: CA)
  Receive Date: 20221107
  Receipt Date: 20221107
  Transmission Date: 20230113
  Serious: Yes (Other)
  Sender: FDA-Public Use
  Company Number: CA-SA-SAC20221103001836

PATIENT
  Age: 19 Year
  Sex: Female

DRUGS (11)
  1. DUPIXENT [Suspect]
     Active Substance: DUPILUMAB
     Indication: Dermatitis atopic
     Dosage: 300 MG
     Route: 058
  2. VAXZEVRIA [Suspect]
     Active Substance: AZD-1222
     Dosage: UNK
  3. BETADERM [Concomitant]
     Active Substance: BETAMETHASONE VALERATE
  4. BETAMETHASONE DIPROPIONATE\GENTAMICIN SULFATE [Concomitant]
     Active Substance: BETAMETHASONE DIPROPIONATE\GENTAMICIN SULFATE
  5. CYCLOSPORINE [Concomitant]
     Active Substance: CYCLOSPORINE
  6. CITALOPRAM HYDROCHLORIDE [Concomitant]
     Active Substance: CITALOPRAM HYDROCHLORIDE
  7. DROSPIRENONE AND ETHINYL ESTRADIOL [Concomitant]
     Active Substance: DROSPIRENONE\ETHINYL ESTRADIOL
  8. ESCITALOPRAM OXALATE [Concomitant]
     Active Substance: ESCITALOPRAM OXALATE
  9. METHOTREXATE [Concomitant]
     Active Substance: METHOTREXATE
  10. TACROLIMUS [Concomitant]
     Active Substance: TACROLIMUS
  11. TOPICORT [Concomitant]
     Active Substance: DESOXIMETASONE

REACTIONS (7)
  - Acute myeloid leukaemia recurrent [Recovered/Resolved]
  - Bone marrow failure [Recovered/Resolved]
  - Lymphadenopathy [Recovered/Resolved]
  - Malignant neoplasm progression [Recovered/Resolved]
  - Pancytopenia [Recovered/Resolved]
  - Skin toxicity [Recovered/Resolved]
  - Drug intolerance [Unknown]
